FAERS Safety Report 9780995 (Version 1)
Quarter: 2013Q4

REPORT INFORMATION
  Report Type: Spontaneous
  Country: US (occurrence: None)
  Receive Date: 20131220
  Receipt Date: 20131220
  Transmission Date: 20140711
  Serious: Yes (Death)
  Sender: FDA-Public Use
  Company Number: 2013-US-004511

PATIENT
  Age: 60 Year
  Sex: Male

DRUGS (4)
  1. CLOZAPINE [Suspect]
     Indication: SCHIZOPHRENIA, PARANOID TYPE
     Route: 048
     Dates: start: 20121126
  2. SEROQUEL [Concomitant]
  3. ZYPREXA [Concomitant]
  4. DEPAKOTE [Concomitant]

REACTIONS (1)
  - Aspiration [None]
